FAERS Safety Report 21111137 (Version 1)
Quarter: 2022Q3

REPORT INFORMATION
  Report Type: Spontaneous
  Country: US (occurrence: US)
  Receive Date: 20220721
  Receipt Date: 20220721
  Transmission Date: 20221026
  Serious: No
  Sender: FDA-Public Use
  Company Number: US-PERRIGO-21US030335

PATIENT
  Age: 70 Year
  Sex: Female
  Weight: 47.166 kg

DRUGS (3)
  1. MINOXIDIL [Suspect]
     Active Substance: MINOXIDIL
     Indication: Alopecia
     Dosage: 1 ML, 1 TO 2 TIMES, DAILY
     Route: 061
     Dates: start: 20211023, end: 20211028
  2. METHOTREXATE [Concomitant]
     Active Substance: METHOTREXATE
     Indication: Eczema
     Dosage: 4-6 TABS WEEKLYUNK
     Route: 065
     Dates: start: 202004
  3. FOLIC ACID [Concomitant]
     Active Substance: FOLIC ACID
     Indication: Eczema
     Dosage: UNK
     Route: 065
     Dates: start: 202004

REACTIONS (2)
  - Off label use [Recovered/Resolved]
  - Accidental exposure to product [Unknown]

NARRATIVE: CASE EVENT DATE: 20211023
